FAERS Safety Report 9795114 (Version 1)
Quarter: 2014Q1

REPORT INFORMATION
  Report Type: Report from Study
  Country: US (occurrence: US)
  Receive Date: 20140103
  Receipt Date: 20140103
  Transmission Date: 20141002
  Serious: Yes (Other)
  Sender: FDA-Public Use
  Company Number: US-ROCHE-1312794

PATIENT
  Sex: Male
  Weight: 66.56 kg

DRUGS (20)
  1. AVASTIN [Suspect]
     Indication: LUNG NEOPLASM MALIGNANT
     Dosage: MIX IN 100 ML NORMAL SALINE, 27/JUL/2012, 17/AUG/2012
     Route: 040
     Dates: start: 20120706
  2. PACLITAXEL [Concomitant]
     Route: 042
     Dates: start: 20120706
  3. CARBOPLATIN [Concomitant]
     Route: 042
     Dates: start: 20120706
  4. PALONOSETRON HYDROCHLORIDE [Concomitant]
     Route: 042
  5. DEXAMETHASONE [Concomitant]
     Route: 042
  6. DEXAMETHASONE [Concomitant]
     Dosage: 2 TWICE A DAY THE DAY BEFORE CHEMOTHERAPY
     Route: 048
  7. DIPHENHYDRAMINE HCL [Concomitant]
     Route: 042
  8. DIPHENHYDRAMINE HCL [Concomitant]
     Dosage: PRN HYPERSENSITIVITY REACTION
     Route: 042
  9. RANITIDINE HCL [Concomitant]
     Route: 042
  10. CHANTIX [Concomitant]
     Dosage: TAKE ONE A DAY FOR 3 DAYS THEN TWICE A DAY
     Route: 048
  11. ASPIRIN [Concomitant]
     Route: 048
  12. ATRIPLA [Concomitant]
     Route: 048
  13. ZOFRAN ODT [Concomitant]
     Route: 048
  14. NORMAL SALINE [Concomitant]
     Route: 065
  15. HYDROCORTISONE SODIUM SUCCINATE [Concomitant]
     Route: 042
  16. METHYLPREDNISOLONE SODIUM SUCCINATE [Concomitant]
     Route: 065
  17. ATIVAN [Concomitant]
     Route: 048
  18. ATRIPLA [Concomitant]
     Dosage: 600-200 MG
     Route: 048
  19. HYDROCODONE BITARTRATE/ACETAMINOPHEN [Concomitant]
     Dosage: 10 MG-325 MG
     Route: 048
  20. PROMETHAZINE HCL [Concomitant]
     Route: 048

REACTIONS (11)
  - Skin cancer [Unknown]
  - Diarrhoea [Recovered/Resolved]
  - Abdominal pain lower [Recovered/Resolved]
  - Nipple pain [Recovering/Resolving]
  - Weight increased [Unknown]
  - Ear discomfort [Unknown]
  - Blood cholesterol increased [Unknown]
  - Cough [Unknown]
  - Nocturia [Unknown]
  - Insomnia [Unknown]
  - Fatigue [Unknown]
